FAERS Safety Report 5810144-5 (Version None)
Quarter: 2008Q3

REPORT INFORMATION
  Report Type: 
  Country: None (occurrence: None)
  Receive Date: 20080715
  Receipt Date: 20070727
  Transmission Date: 20090109
  Serious: No
  Sender: FDA-Public Use
  Company Number: A0666753A

PATIENT
  Age: 44 Year
  Sex: Female

DRUGS (2)
  1. IMITREX [Suspect]
     Indication: MIGRAINE
     Dosage: 100MG AS REQUIRED
     Route: 048
     Dates: start: 20060901
  2. UNSPECIFIED MEDICATION [Concomitant]
     Indication: MIGRAINE

REACTIONS (1)
  - PAIN IN JAW [None]
